FAERS Safety Report 10932437 (Version 1)
Quarter: 2015Q1

REPORT INFORMATION
  Report Type: Spontaneous
  Country: US (occurrence: None)
  Receive Date: 20150319
  Receipt Date: 20150319
  Transmission Date: 20150721
  Serious: No
  Sender: FDA-Public Use
  Company Number: None

PATIENT
  Age: 38 Year
  Sex: Female
  Weight: 72.58 kg

DRUGS (1)
  1. MIRVASO [Suspect]
     Active Substance: BRIMONIDINE TARTRATE

REACTIONS (4)
  - Application site erythema [None]
  - Application site pain [None]
  - Flushing [None]
  - Application site pruritus [None]

NARRATIVE: CASE EVENT DATE: 20140616
